FAERS Safety Report 21365833 (Version 4)
Quarter: 2024Q2

REPORT INFORMATION
  Report Type: Report from Study
  Country: AU (occurrence: AU)
  Receive Date: 20220922
  Receipt Date: 20240507
  Transmission Date: 20240716
  Serious: Yes (Hospitalization, Other)
  Sender: FDA-Public Use
  Company Number: AU-SA-SAC20220919001442

PATIENT
  Age: 34 Year
  Sex: Female

DRUGS (29)
  1. ALEMTUZUMAB [Suspect]
     Active Substance: ALEMTUZUMAB
     Dosage: 12 MG
     Route: 041
     Dates: start: 20150615, end: 20150619
  2. ALEMTUZUMAB [Suspect]
     Active Substance: ALEMTUZUMAB
     Dosage: 12 MG
     Route: 041
     Dates: start: 20160627, end: 20160629
  3. ALEMTUZUMAB [Suspect]
     Active Substance: ALEMTUZUMAB
     Dosage: 12 MG
     Route: 041
     Dates: start: 20180326, end: 20180328
  4. IBUPROFEN [Concomitant]
     Active Substance: IBUPROFEN
     Indication: Headache
     Dosage: 400 MG, 1X
     Route: 048
     Dates: start: 20150615, end: 20150615
  5. TORADOL [Concomitant]
     Active Substance: KETOROLAC TROMETHAMINE
     Indication: Headache
     Dosage: 30 MG, 1X
     Route: 030
     Dates: start: 20150615, end: 20150615
  6. DEPO-PROVERA [Concomitant]
     Active Substance: MEDROXYPROGESTERONE ACETATE
     Indication: Prophylaxis
     Dosage: 150 MG
     Route: 030
     Dates: start: 201408
  7. CLARITHROMYCIN [Concomitant]
     Active Substance: CLARITHROMYCIN
     Indication: Lower respiratory tract infection
     Dosage: 250 MG, BID
     Route: 048
     Dates: start: 20150628, end: 20150703
  8. ALBUTEROL [Concomitant]
     Active Substance: ALBUTEROL
     Indication: Asthma
     Dosage: 600 UG, PRN
     Route: 055
     Dates: start: 1997
  9. FLUTICASONE [Concomitant]
     Active Substance: FLUTICASONE
     Indication: Asthma
     Dosage: 88 UG, PRN
     Route: 055
     Dates: start: 1997
  10. AUGMENTIN [Concomitant]
     Active Substance: AMOXICILLIN\CLAVULANATE POTASSIUM
     Dosage: 1 G, QD
     Route: 048
     Dates: start: 20150626, end: 20150706
  11. DOXYCYCLINE [Concomitant]
     Active Substance: DOXYCYCLINE
     Dosage: 200 MG, QD
     Route: 048
     Dates: start: 20150626, end: 20150706
  12. AMOXICILLIN [Concomitant]
     Active Substance: AMOXICILLIN
     Dosage: 250 MG, TID
     Route: 048
     Dates: start: 20150728, end: 201507
  13. VALACYCLOVIR HYDROCHLORIDE [Concomitant]
     Active Substance: VALACYCLOVIR HYDROCHLORIDE
     Indication: Herpes zoster
     Dosage: 500 MG, QD
     Route: 048
     Dates: start: 20150628, end: 20150703
  14. VALACYCLOVIR HYDROCHLORIDE [Concomitant]
     Active Substance: VALACYCLOVIR HYDROCHLORIDE
     Dosage: 500 MG, BID
     Route: 048
     Dates: start: 201706, end: 201706
  15. KEFLEX [Concomitant]
     Active Substance: CEPHALEXIN
     Indication: Furuncle
     Dosage: 500 MG, BID
     Route: 048
     Dates: start: 20160427, end: 20160507
  16. DISTAPH [Concomitant]
     Indication: Furuncle
     Dosage: 250 MG, QID
     Route: 048
     Dates: start: 20160427, end: 20160507
  17. BACTROBAN [Concomitant]
     Active Substance: MUPIROCIN CALCIUM
     Indication: Furuncle
     Dosage: 250 MG, BID
     Route: 061
     Dates: start: 20160427, end: 20160507
  18. TRAMADOL [Concomitant]
     Active Substance: TRAMADOL\TRAMADOL HYDROCHLORIDE
     Indication: Herpes zoster
     Dosage: 50 MG, BID
     Route: 048
     Dates: start: 201706, end: 201706
  19. LYRICA [Concomitant]
     Active Substance: PREGABALIN
     Indication: Herpes zoster
     Dosage: 75 MG, BID
     Route: 048
     Dates: start: 201706, end: 201706
  20. AMITRIPTYLINE [Concomitant]
     Active Substance: AMITRIPTYLINE
     Indication: Herpes zoster
     Dosage: 10 MG, BID
     Route: 048
     Dates: start: 201706, end: 201706
  21. CEPHALEXIN HYDROCHLORIDE [Concomitant]
     Active Substance: CEPHALEXIN HYDROCHLORIDE
     Indication: Lower respiratory tract infection
     Dosage: 500 MG, BID
     Route: 048
     Dates: start: 20180731, end: 20180804
  22. CEPHALEXIN HYDROCHLORIDE [Concomitant]
     Active Substance: CEPHALEXIN HYDROCHLORIDE
     Dosage: 500 MG, BID
     Route: 048
     Dates: start: 20190704, end: 201907
  23. CEPHALEXIN HYDROCHLORIDE [Concomitant]
     Active Substance: CEPHALEXIN HYDROCHLORIDE
     Dosage: 500 MG, BID
     Route: 048
     Dates: start: 20190811, end: 20190818
  24. DOXYCYCLINE [Concomitant]
     Active Substance: DOXYCYCLINE
     Indication: Bronchitis
     Dosage: 200 MG, QD
     Route: 048
     Dates: start: 201812, end: 201812
  25. OXYBUTYNIN [Concomitant]
     Active Substance: OXYBUTYNIN\OXYBUTYNIN CHLORIDE
     Indication: Bladder spasm
     Dosage: 3.9 MG, QD
     Route: 062
     Dates: start: 201810, end: 201810
  26. FLUCLOXACILLIN [Concomitant]
     Active Substance: FLUCLOXACILLIN
     Indication: Furuncle
     Dosage: 500 MG, BID
     Route: 048
     Dates: start: 20190909, end: 20190914
  27. ACETAMINOPHEN [Concomitant]
     Active Substance: ACETAMINOPHEN
     Indication: Headache
     Dosage: 1000 MG, QD
     Route: 048
     Dates: start: 20180326, end: 20180328
  28. CARBIMAZOLE [Concomitant]
     Active Substance: CARBIMAZOLE
     Indication: Autoimmune hypothyroidism
     Dosage: 5 MG
     Route: 048
     Dates: start: 202110, end: 202207
  29. TRAMADOL HYDROCHLORIDE [Concomitant]
     Active Substance: TRAMADOL HYDROCHLORIDE

REACTIONS (2)
  - Colitis ulcerative [Not Recovered/Not Resolved]
  - Colitis [Recovered/Resolved]

NARRATIVE: CASE EVENT DATE: 20220906
